FAERS Safety Report 10206324 (Version 1)
Quarter: 2014Q2

REPORT INFORMATION
  Report Type: Spontaneous
  Country: DE (occurrence: DE)
  Receive Date: 20140530
  Receipt Date: 20140530
  Transmission Date: 20141212
  Serious: Yes (Other)
  Sender: FDA-Public Use
  Company Number: PHHY2014DE063429

PATIENT
  Sex: Male

DRUGS (2)
  1. RASILEZ [Suspect]
     Dosage: 300 MG, UNK
     Dates: start: 20111005
  2. SARTAN [Concomitant]
     Dosage: UNK UKN, UNK

REACTIONS (1)
  - Atrial fibrillation [Unknown]
